APPROVED DRUG PRODUCT: HYDROXYZINE PAMOATE
Active Ingredient: HYDROXYZINE PAMOATE
Strength: EQ 50MG HYDROCHLORIDE
Dosage Form/Route: CAPSULE;ORAL
Application: A086705 | Product #001
Applicant: WATSON LABORATORIES INC
Approved: Jul 1, 1982 | RLD: No | RS: No | Type: DISCN